FAERS Safety Report 4286535-3 (Version None)
Quarter: 2004Q1

REPORT INFORMATION
  Report Type: 
  Country: None (occurrence: None)
  Receive Date: 20040204
  Receipt Date: 20040126
  Transmission Date: 20041129
  Serious: Yes (Death, Hospitalization)
  Sender: FDA-Public Use
  Company Number: JP-JNJFOC-20040104917

PATIENT
  Age: 68 Year
  Sex: Female

DRUGS (3)
  1. LEVOFLOXACIN [Suspect]
     Indication: PNEUMONIA
     Dates: start: 20030101, end: 20030101
  2. ACETAMINOPHEN [Concomitant]
  3. HEPARIN [Concomitant]

REACTIONS (3)
  - CONDITION AGGRAVATED [None]
  - PANCREATITIS ACUTE [None]
  - PNEUMONIA [None]
